FAERS Safety Report 19459677 (Version 8)
Quarter: 2021Q3

REPORT INFORMATION
  Report Type: Report from Study
  Country: CA (occurrence: CA)
  Receive Date: 20210624
  Receipt Date: 20210922
  Transmission Date: 20211014
  Serious: Yes (Other)
  Sender: FDA-Public Use
  Company Number: CA-TAKEDA-CA201940051

PATIENT
  Age: 50 Year
  Sex: Male
  Weight: 113 kg

DRUGS (23)
  1. VELAGLUCERASE ALFA [Suspect]
     Active Substance: VELAGLUCERASE ALFA
     Dosage: UNK
     Route: 065
     Dates: start: 20200131
  2. VELAGLUCERASE ALFA [Suspect]
     Active Substance: VELAGLUCERASE ALFA
     Dosage: 13 DOSAGE FORM, Q2WEEKS
     Route: 065
     Dates: start: 20200420
  3. VELAGLUCERASE ALFA [Suspect]
     Active Substance: VELAGLUCERASE ALFA
     Dosage: 13 DOSAGE FORM, Q2WEEKS
     Route: 065
     Dates: start: 20170329
  4. VELAGLUCERASE ALFA [Suspect]
     Active Substance: VELAGLUCERASE ALFA
     Dosage: UNK
     Route: 065
     Dates: start: 20200224
  5. VELAGLUCERASE ALFA [Suspect]
     Active Substance: VELAGLUCERASE ALFA
     Dosage: 13 DOSAGE FORM, Q2WEEKS
     Route: 065
     Dates: start: 20170329
  6. VELAGLUCERASE ALFA [Suspect]
     Active Substance: VELAGLUCERASE ALFA
     Dosage: 13 DOSAGE FORM, Q2WEEKS
     Route: 065
     Dates: start: 20170329
  7. RAMIPRIL. [Concomitant]
     Active Substance: RAMIPRIL
     Dosage: 5 MILLIGRAM, QD
     Route: 065
  8. INVOKANA [Concomitant]
     Active Substance: CANAGLIFLOZIN
     Indication: DIABETES MELLITUS
     Dosage: 300 MILLIGRAM, QD
     Route: 048
  9. VELAGLUCERASE ALFA [Suspect]
     Active Substance: VELAGLUCERASE ALFA
     Indication: GAUCHER^S DISEASE
     Dosage: 13 DOSAGE FORM, Q2WEEKS
     Route: 065
     Dates: start: 20170329
  10. VELAGLUCERASE ALFA [Suspect]
     Active Substance: VELAGLUCERASE ALFA
     Dosage: 13 DOSAGE FORM, Q2WEEKS
     Route: 065
     Dates: start: 20191118
  11. VELAGLUCERASE ALFA [Suspect]
     Active Substance: VELAGLUCERASE ALFA
     Dosage: UNK
     Route: 065
     Dates: start: 20200114
  12. VELAGLUCERASE ALFA [Suspect]
     Active Substance: VELAGLUCERASE ALFA
     Dosage: 13 DOSAGE FORM, Q2WEEKS
     Route: 065
     Dates: start: 20200406
  13. VELAGLUCERASE ALFA [Suspect]
     Active Substance: VELAGLUCERASE ALFA
     Dosage: 5200 INTERNATIONAL UNIT, Q2WEEKS
     Route: 065
     Dates: start: 20170329
  14. VELAGLUCERASE ALFA [Suspect]
     Active Substance: VELAGLUCERASE ALFA
     Dosage: 13 DOSAGE FORM, Q2WEEKS
     Route: 042
     Dates: start: 20170329
  15. VELAGLUCERASE ALFA [Suspect]
     Active Substance: VELAGLUCERASE ALFA
     Dosage: 13 DOSAGE FORM, Q2WEEKS
     Route: 065
     Dates: start: 20170329
  16. GABAPENTIN. [Concomitant]
     Active Substance: GABAPENTIN
     Dosage: 700 MILLIGRAM, TID
     Route: 065
  17. VELAGLUCERASE ALFA [Suspect]
     Active Substance: VELAGLUCERASE ALFA
     Dosage: 13 DOSAGE FORM, Q2WEEKS
     Route: 065
     Dates: start: 20170329
  18. TRADJENTA [Concomitant]
     Active Substance: LINAGLIPTIN
     Indication: HYPERTENSION
     Dosage: 5 MILLIGRAM, 1X/DAY:QD
     Route: 048
  19. TYLENOL [Concomitant]
     Active Substance: ACETAMINOPHEN
     Indication: PAIN
     Dosage: UNK, PRN
     Route: 065
  20. VELAGLUCERASE ALFA [Suspect]
     Active Substance: VELAGLUCERASE ALFA
     Dosage: 13 DOSAGE FORM, Q2WEEKS
     Route: 065
     Dates: start: 20170329
  21. VELAGLUCERASE ALFA [Suspect]
     Active Substance: VELAGLUCERASE ALFA
     Dosage: 13 DOSAGE FORM, Q2WEEKS
     Route: 065
     Dates: start: 20170329
  22. RAMIPRIL. [Concomitant]
     Active Substance: RAMIPRIL
     Indication: HYPERTENSION
     Dosage: 2.5 MILLIGRAM, QD
     Route: 048
  23. GABAPENTIN. [Concomitant]
     Active Substance: GABAPENTIN
     Indication: NEURALGIA
     Dosage: 200 MILLIGRAM
     Route: 065

REACTIONS (30)
  - Gout [Recovered/Resolved]
  - Abdominal discomfort [Unknown]
  - Body temperature fluctuation [Not Recovered/Not Resolved]
  - Personality change [Recovering/Resolving]
  - Condition aggravated [Not Recovered/Not Resolved]
  - Fatigue [Not Recovered/Not Resolved]
  - Abdominal pain [Recovering/Resolving]
  - Back pain [Not Recovered/Not Resolved]
  - Pain in extremity [Unknown]
  - Respiratory rate increased [Unknown]
  - Weight fluctuation [Not Recovered/Not Resolved]
  - Irregular sleep phase [Unknown]
  - Blood cholesterol increased [Unknown]
  - Malaise [Recovered/Resolved]
  - Blood pressure increased [Unknown]
  - Headache [Recovered/Resolved]
  - Peripheral swelling [Recovered/Resolved]
  - Bone pain [Recovered/Resolved]
  - Nausea [Recovered/Resolved]
  - Mood altered [Recovering/Resolving]
  - Pain [Not Recovered/Not Resolved]
  - Blood triglycerides increased [Unknown]
  - Wrong technique in product usage process [Unknown]
  - Muscle tightness [Unknown]
  - Localised infection [Not Recovered/Not Resolved]
  - Neuropathy peripheral [Not Recovered/Not Resolved]
  - Diarrhoea [Recovered/Resolved]
  - Poor venous access [Recovered/Resolved]
  - Cold sweat [Unknown]
  - Arthralgia [Not Recovered/Not Resolved]

NARRATIVE: CASE EVENT DATE: 20191109
